FAERS Safety Report 5129962-4 (Version None)
Quarter: 2006Q4

REPORT INFORMATION
  Report Type: 
  Country: None (occurrence: None)
  Receive Date: 20061013
  Receipt Date: 20061010
  Transmission Date: 20070319
  Serious: Yes (Death)
  Sender: FDA-Public Use
  Company Number: TCI0T01007895

PATIENT
  Age: 62 Year
  Sex: Male

DRUGS (3)
  1. LANSOPRAZOLE [Suspect]
     Indication: GASTRIC ULCER
     Dosage: 30 MG (30 MG, 1 IN 1 D) PER ORAL
     Route: 048
  2. VOLTAREN [Suspect]
     Dosage: (1 IN 1 D) PER RECTAL
     Route: 054
  3. METHAPHYLLIN (METHAPHYLLIN) [Concomitant]

REACTIONS (3)
  - CARDIAC FAILURE [None]
  - HAEMORRHAGE [None]
  - MELAENA [None]
